FAERS Safety Report 12217851 (Version 1)
Quarter: 2016Q1

REPORT INFORMATION
  Report Type: Spontaneous
  Country: US (occurrence: None)
  Receive Date: 20160328
  Receipt Date: 20160328
  Transmission Date: 20160526
  Serious: Yes (Life-Threatening, Disabling)
  Sender: FDA-Public Use
  Company Number: None

PATIENT
  Age: 24 Year
  Sex: Female
  Weight: 58.97 kg

DRUGS (1)
  1. METHAMPHETAMINE HCL, 5 MG [Suspect]
     Active Substance: METHAMPHETAMINE HYDROCHLORIDE
     Indication: SENSORY DISTURBANCE
     Route: 048
     Dates: start: 20151228, end: 20160124

REACTIONS (12)
  - Condition aggravated [None]
  - Social avoidant behaviour [None]
  - Product substitution issue [None]
  - Anxiety [None]
  - Feeling abnormal [None]
  - Depression [None]
  - Change in sustained attention [None]
  - Insomnia [None]
  - Nausea [None]
  - Drug ineffective [None]
  - Suicidal ideation [None]
  - Decreased appetite [None]

NARRATIVE: CASE EVENT DATE: 20160108
